FAERS Safety Report 5901498-X (Version None)
Quarter: 2008Q3

REPORT INFORMATION
  Report Type: 
  Country: None (occurrence: None)
  Receive Date: 20080929
  Receipt Date: 20080919
  Transmission Date: 20090109
  Serious: No
  Sender: FDA-Public Use
  Company Number: FR-EISAI MEDIAL RESEARCH-E3810-01909-SPO-FR

PATIENT
  Sex: Female

DRUGS (2)
  1. RABEPRAZOLE SODIUM [Suspect]
     Indication: GASTROOESOPHAGEAL REFLUX DISEASE
     Dosage: 1 DOSE
     Route: 048
     Dates: start: 20080401, end: 20080504
  2. DOMPERIDONE [Concomitant]
     Indication: GASTROOESOPHAGEAL REFLUX DISEASE
     Route: 048
     Dates: start: 20080401

REACTIONS (2)
  - TOXIC SKIN ERUPTION [None]
  - VARICELLA [None]
